FAERS Safety Report 8968001 (Version 1)
Quarter: 2012Q4

REPORT INFORMATION
  Report Type: 
  Country: US (occurrence: US)
  Receive Date: 20121218
  Receipt Date: 20121218
  Transmission Date: 20130627
  Serious: No
  Sender: FDA-Public Use
  Company Number: US-TARO-2012P1028944

PATIENT
  Age: 36 Year
  Sex: Female
  Weight: 106.14 kg

DRUGS (6)
  1. CARBAMAZEPINE [Suspect]
     Indication: TRIGEMINAL NEURALGIA
     Route: 048
     Dates: start: 2006
  2. OMEPRAZOLE [Concomitant]
  3. NUVIGIL [Concomitant]
  4. PATANASE NASAL SPRAY [Concomitant]
  5. AZELASTINE EYE DROPS [Concomitant]
  6. CLARITIN [Concomitant]

REACTIONS (1)
  - Coeliac disease [Not Recovered/Not Resolved]
